FAERS Safety Report 7871736-5 (Version None)
Quarter: 2011Q4

REPORT INFORMATION
  Report Type: 
  Country: None (occurrence: None)
  Receive Date: 20111029
  Receipt Date: 20110307
  Transmission Date: 20120403
  Serious: No
  Sender: FDA-Public Use
  Company Number: US-AMGEN-USASP2011012679

PATIENT
  Sex: Male

DRUGS (2)
  1. ENBREL [Suspect]
     Indication: PSORIATIC ARTHROPATHY
     Dosage: 50 MG, 2 TIMES/WK
     Dates: start: 20090401, end: 20090701
  2. ENBREL [Suspect]
     Indication: PSORIASIS

REACTIONS (5)
  - PSORIATIC ARTHROPATHY [None]
  - PSORIASIS [None]
  - FALL [None]
  - JOINT INJURY [None]
  - ALOPECIA [None]
